FAERS Safety Report 17027865 (Version 4)
Quarter: 2019Q4

REPORT INFORMATION
  Report Type: Spontaneous
  Country: IN (occurrence: IN)
  Receive Date: 20191113
  Receipt Date: 20191202
  Transmission Date: 20200122
  Serious: Yes (Hospitalization)
  Sender: FDA-Public Use
  Company Number: IN-EISAI MEDICAL RESEARCH-EC-2019-064969

PATIENT
  Age: 29 Year
  Sex: Female
  Weight: 89 kg

DRUGS (1)
  1. ALFENCE (LORCASERIN) [Suspect]
     Active Substance: LORCASERIN
     Indication: PRODUCT USED FOR UNKNOWN INDICATION
     Dosage: DOSAGE AND FREQUENCY UNKNOWN
     Route: 048
     Dates: start: 201910, end: 2019

REACTIONS (2)
  - Cerebrovascular accident [Recovering/Resolving]
  - Muscular weakness [Recovering/Resolving]

NARRATIVE: CASE EVENT DATE: 20191028
